FAERS Safety Report 7762697-8 (Version None)
Quarter: 2011Q3

REPORT INFORMATION
  Report Type: 
  Country: None (occurrence: None)
  Receive Date: 20110920
  Receipt Date: 20110914
  Transmission Date: 20111222
  Serious: Yes (Other)
  Sender: FDA-Public Use
  Company Number: US-PFIZER INC-2011217803

PATIENT
  Age: 43 Year
  Sex: Female
  Weight: 58.957 kg

DRUGS (3)
  1. ADDERALL 5 [Concomitant]
     Indication: NARCOLEPSY
     Dosage: 20 MG, DAILY
  2. EFFEXOR [Suspect]
     Indication: CATAPLEXY
     Dosage: 32.5 MG, DAILY
     Dates: start: 20110301, end: 20110501
  3. EFFEXOR XR [Suspect]
     Indication: CATAPLEXY
     Dosage: 75 MG, DAILY
     Dates: start: 20110501

REACTIONS (2)
  - DEPRESSION [None]
  - NERVOUS SYSTEM DISORDER [None]
